FAERS Safety Report 6940214-X (Version None)
Quarter: 2010Q3

REPORT INFORMATION
  Report Type: 
  Country: None (occurrence: None)
  Receive Date: 20100820
  Receipt Date: 20100804
  Transmission Date: 20110219
  Serious: Yes (Hospitalization)
  Sender: FDA-Public Use
  Company Number: DSA_43684_2010

PATIENT
  Age: 76 Year
  Sex: Female

DRUGS (3)
  1. ENALAPRIL MALEATE [Suspect]
     Indication: CARDIAC DISORDER
     Dosage: (DF ORAL)
     Route: 048
     Dates: end: 20091022
  2. SPIRONOLACTONE [Suspect]
     Indication: CARDIAC DISORDER
     Dosage: (DF ORAL)
     Route: 048
     Dates: end: 20091022
  3. METFORMIN HCL [Suspect]
     Indication: DIABETES MELLITUS
     Dosage: (DF ORAL)
     Route: 048
     Dates: end: 20091022

REACTIONS (4)
  - ACIDOSIS [None]
  - BLOOD CREATININE INCREASED [None]
  - HYPERKALAEMIA [None]
  - NAUSEA [None]
